FAERS Safety Report 5074759-7 (Version None)
Quarter: 2006Q3

REPORT INFORMATION
  Report Type: 
  Country: None (occurrence: None)
  Receive Date: 20060807
  Receipt Date: 20060728
  Transmission Date: 20061208
  Serious: Yes (Other)
  Sender: FDA-Public Use
  Company Number: 14469

PATIENT
  Age: 57 Year
  Sex: Female

DRUGS (6)
  1. CARBOPLATIN [Suspect]
     Indication: OVARIAN CANCER
     Dates: start: 20050119, end: 20050119
  2. DEXAMETHASONE [Concomitant]
  3. DOLASETRON [Concomitant]
  4. FACLITAXEL [Concomitant]
  5. PHENERGAN HCL [Concomitant]
  6. RANITIDINE [Concomitant]

REACTIONS (2)
  - COUGH [None]
  - DYSPNOEA [None]
